FAERS Safety Report 6706099-1 (Version None)
Quarter: 2010Q2

REPORT INFORMATION
  Report Type: 
  Country: None (occurrence: None)
  Receive Date: 20100503
  Receipt Date: 20100423
  Transmission Date: 20101027
  Serious: Yes (Other)
  Sender: FDA-Public Use
  Company Number: ZA-PFIZER INC-2010051986

PATIENT
  Age: 44 Year
  Sex: Female

DRUGS (1)
  1. DETRUSITOL SR [Suspect]
     Dosage: 4 MG, UNK
     Route: 048

REACTIONS (2)
  - NERVOUSNESS [None]
  - TREMOR [None]
